FAERS Safety Report 6347153 (Version 2)
Quarter: 2013Q2

REPORT INFORMATION
  Report Type: Spontaneous
  Country: US (occurrence: US)
  Receive Date: 20070702
  Receipt Date: 20130506
  Transmission Date: 20140414
  Serious: Yes (Hospitalization)
  Sender: FDA-Public Use
  Company Number: US-JNJFOC-20070606147

PATIENT
  Age: 0 None
  Sex: Male
  Weight: 2.43 kg

DRUGS (3)
  1. MOTRIN 800 MG [Suspect]
     Indication: FOETAL EXPOSURE DURING PREGNANCY
     Route: 064
     Dates: start: 200506, end: 200507
  2. REBIF [Suspect]
     Indication: FOETAL EXPOSURE DURING PREGNANCY
     Route: 064
  3. ZOMIG [Suspect]
     Indication: FOETAL EXPOSURE DURING PREGNANCY
     Route: 064

REACTIONS (7)
  - Jaundice neonatal [Recovered/Resolved]
  - Nystagmus [Not Recovered/Not Resolved]
  - Premature baby [Unknown]
  - Asthma [Not Recovered/Not Resolved]
  - Aspiration [Unknown]
  - Dysphagia [Unknown]
  - Foetal exposure during pregnancy [Unknown]
